FAERS Safety Report 6815813-6 (Version None)
Quarter: 2010Q3

REPORT INFORMATION
  Report Type: 
  Country: None (occurrence: None)
  Receive Date: 20100705
  Receipt Date: 20100624
  Transmission Date: 20110219
  Serious: Yes (Hospitalization, Other)
  Sender: FDA-Public Use
  Company Number: US-BIOGENIDEC-2009BI039841

PATIENT
  Age: 59 Year
  Sex: Male
  Weight: 90 kg

DRUGS (1)
  1. TYSABRI [Suspect]
     Indication: MULTIPLE SCLEROSIS
     Route: 042
     Dates: start: 20080128, end: 20091116

REACTIONS (4)
  - DRUG SPECIFIC ANTIBODY PRESENT [None]
  - HEADACHE [None]
  - MULTIPLE SCLEROSIS [None]
  - NORMAL PRESSURE HYDROCEPHALUS [None]
